FAERS Safety Report 5978451-3 (Version None)
Quarter: 2008Q4

REPORT INFORMATION
  Report Type: 
  Country: None (occurrence: None)
  Receive Date: 20081204
  Receipt Date: 20081126
  Transmission Date: 20090506
  Serious: Yes (Life-Threatening, Hospitalization, Disabling)
  Sender: FDA-Public Use
  Company Number: JP-JNJFOC-20080406150

PATIENT
  Sex: Male

DRUGS (10)
  1. FINIBAX [Suspect]
     Route: 041
  2. FINIBAX [Suspect]
     Indication: PERITONITIS
     Route: 041
  3. SOLDEM 1 [Concomitant]
     Route: 041
  4. SALINHES [Concomitant]
     Indication: PERITONITIS
     Route: 041
  5. MEYLON [Concomitant]
     Indication: PERITONITIS
     Route: 041
  6. TAKEPRON [Concomitant]
     Route: 042
  7. VENOGLOBULIN [Concomitant]
     Route: 041
  8. MORPHINE HCL ELIXIR [Concomitant]
     Route: 041
  9. ALBUMIN (HUMAN) [Concomitant]
     Route: 041
  10. PLATELETS [Concomitant]
     Route: 041

REACTIONS (5)
  - ALANINE AMINOTRANSFERASE INCREASED [None]
  - ASPARTATE AMINOTRANSFERASE INCREASED [None]
  - BLOOD BILIRUBIN INCREASED [None]
  - PANCREATIC CARCINOMA [None]
  - PLATELET COUNT DECREASED [None]
